FAERS Safety Report 21366469 (Version 1)
Quarter: 2022Q3

REPORT INFORMATION
  Report Type: Report from Study
  Country: US (occurrence: US)
  Receive Date: 20220923
  Receipt Date: 20220923
  Transmission Date: 20221027
  Serious: Yes (Other)
  Sender: FDA-Public Use
  Company Number: US-TAKEDA-US201942631

PATIENT
  Age: 55 Year
  Sex: Female
  Weight: 33 kg

DRUGS (24)
  1. TEDUGLUTIDE [Suspect]
     Active Substance: TEDUGLUTIDE
     Indication: Short-bowel syndrome
     Dosage: 0.17 MILLILITER, QD
     Route: 050
     Dates: start: 20151222
  2. TEDUGLUTIDE [Suspect]
     Active Substance: TEDUGLUTIDE
     Indication: Short-bowel syndrome
     Dosage: 0.17 MILLILITER, QD
     Route: 050
     Dates: start: 20151222
  3. TEDUGLUTIDE [Suspect]
     Active Substance: TEDUGLUTIDE
     Indication: Short-bowel syndrome
     Dosage: 0.17 MILLILITER, QD
     Route: 050
     Dates: start: 20151222
  4. TEDUGLUTIDE [Suspect]
     Active Substance: TEDUGLUTIDE
     Indication: Short-bowel syndrome
     Dosage: 0.17 MILLILITER, QD
     Route: 050
     Dates: start: 20151222
  5. TEDUGLUTIDE [Suspect]
     Active Substance: TEDUGLUTIDE
     Dosage: 0.17 MILLILITER, QD
     Route: 058
  6. TEDUGLUTIDE [Suspect]
     Active Substance: TEDUGLUTIDE
     Dosage: 0.17 MILLILITER, QD
     Route: 058
  7. TEDUGLUTIDE [Suspect]
     Active Substance: TEDUGLUTIDE
     Dosage: 0.17 MILLILITER, QD
     Route: 058
  8. TEDUGLUTIDE [Suspect]
     Active Substance: TEDUGLUTIDE
     Dosage: 0.17 MILLILITER, QD
     Route: 058
  9. TEDUGLUTIDE [Suspect]
     Active Substance: TEDUGLUTIDE
     Dosage: 0.17 MILLILITER, QD
     Route: 058
     Dates: start: 20151222
  10. TEDUGLUTIDE [Suspect]
     Active Substance: TEDUGLUTIDE
     Dosage: 0.17 MILLILITER, QD
     Route: 058
     Dates: start: 20151222
  11. TEDUGLUTIDE [Suspect]
     Active Substance: TEDUGLUTIDE
     Dosage: 0.17 MILLILITER, QD
     Route: 058
     Dates: start: 20151222
  12. TEDUGLUTIDE [Suspect]
     Active Substance: TEDUGLUTIDE
     Dosage: 0.17 MILLILITER, QD
     Route: 058
     Dates: start: 20151222
  13. SPIRIVA [Concomitant]
     Active Substance: TIOTROPIUM BROMIDE MONOHYDRATE
     Dosage: 18 MICROGRAM
     Route: 065
  14. AZITHROMYCIN [Concomitant]
     Active Substance: AZITHROMYCIN
     Dosage: UNK
     Route: 065
  15. SYMBICORT [Concomitant]
     Active Substance: BUDESONIDE\FORMOTEROL FUMARATE DIHYDRATE
     Dosage: UNK
     Route: 065
  16. SANDOSTATIN [Concomitant]
     Active Substance: OCTREOTIDE ACETATE
     Dosage: UNK
     Route: 065
  17. REQUIP [Concomitant]
     Active Substance: ROPINIROLE HYDROCHLORIDE
     Dosage: 0.25 MILLIGRAM
     Route: 065
  18. PREGABALIN [Concomitant]
     Active Substance: PREGABALIN
     Dosage: 100 MILLIGRAM
     Route: 065
  19. PANTOPRAZOLE SODIUM [Concomitant]
     Active Substance: PANTOPRAZOLE SODIUM
     Dosage: 20 MILLIGRAM
     Route: 065
  20. PERCOCET [Concomitant]
     Active Substance: ACETAMINOPHEN\OXYCODONE HYDROCHLORIDE
     Dosage: UNK
     Route: 065
  21. ONDANSETRON [Concomitant]
     Active Substance: ONDANSETRON
     Dosage: 24 MILLIGRAM
     Route: 065
  22. CYANOCOBALAMIN [Concomitant]
     Active Substance: CYANOCOBALAMIN
     Dosage: UNK
     Route: 065
  23. CITALOPRAM [Concomitant]
     Active Substance: CITALOPRAM HYDROBROMIDE
     Dosage: 10 MILLIGRAM
     Route: 065
  24. AMILORIDE HCL [Concomitant]
     Active Substance: AMILORIDE HYDROCHLORIDE
     Dosage: 5 MILLIGRAM
     Route: 065

REACTIONS (14)
  - Renal failure [Unknown]
  - Back pain [Unknown]
  - Weight decreased [Unknown]
  - Weight increased [Unknown]
  - Contusion [Unknown]
  - Nasopharyngitis [Unknown]
  - Peripheral swelling [Unknown]
  - Headache [Unknown]
  - Adverse drug reaction [Unknown]
  - Product availability issue [Unknown]
  - Product dose omission issue [Unknown]
  - Product distribution issue [Unknown]
  - Inappropriate schedule of product administration [Unknown]
  - Oxygen saturation abnormal [Unknown]

NARRATIVE: CASE EVENT DATE: 20191220
